FAERS Safety Report 11968666 (Version 1)
Quarter: 2016Q1

REPORT INFORMATION
  Report Type: Spontaneous
  Country: US (occurrence: US)
  Receive Date: 20160128
  Receipt Date: 20160128
  Transmission Date: 20160526
  Serious: Yes (Other)
  Sender: FDA-Public Use
  Company Number: US-PAR PHARMACEUTICAL COMPANIES-2016SCPR015114

PATIENT

DRUGS (4)
  1. CEFUROXIME. [Suspect]
     Active Substance: CEFUROXIME
     Indication: INFECTION PROPHYLAXIS
     Dosage: UNK UNK, UNKNOWN
     Route: 065
  2. DOXYCYCLINE. [Suspect]
     Active Substance: DOXYCYCLINE
     Indication: ARTHROPOD BITE
     Dosage: UNK UNK, UNKNOWN
     Route: 065
  3. DOXYCYCLINE. [Suspect]
     Active Substance: DOXYCYCLINE
     Indication: INFECTION PROPHYLAXIS
  4. CEFUROXIME. [Suspect]
     Active Substance: CEFUROXIME
     Indication: ARTHROPOD BITE
     Dosage: UNK UNK, UNKNOWN
     Route: 065

REACTIONS (2)
  - Drug intolerance [Unknown]
  - Drug-induced liver injury [Recovering/Resolving]
